FAERS Safety Report 5139281-8 (Version None)
Quarter: 2006Q4

REPORT INFORMATION
  Report Type: 
  Country: None (occurrence: None)
  Receive Date: 20061024
  Receipt Date: 20061011
  Transmission Date: 20070319
  Serious: Yes (Hospitalization)
  Sender: FDA-Public Use
  Company Number: 2006BI014599

PATIENT
  Age: 42 Year
  Sex: Female
  Weight: 79.8331 kg

DRUGS (1)
  1. AVONEX [Suspect]
     Indication: MULTIPLE SCLEROSIS
     Dosage: 30  UG;QW;IM
     Route: 030
     Dates: start: 20051225

REACTIONS (4)
  - CONDITION AGGRAVATED [None]
  - HAEMOPTYSIS [None]
  - MULTIPLE SCLEROSIS [None]
  - PNEUMONIA [None]
